FAERS Safety Report 19236570 (Version 1)
Quarter: 2021Q2

REPORT INFORMATION
  Report Type: Spontaneous
  Country: US (occurrence: US)
  Receive Date: 20210507
  Receipt Date: 20210507
  Transmission Date: 20210717
  Serious: Yes (Hospitalization)
  Sender: FDA-Public Use
  Company Number: None

PATIENT
  Age: 38 Year
  Sex: Female

DRUGS (7)
  1. AMITRIPTYLIN [Concomitant]
     Active Substance: AMITRIPTYLINE
  2. IMITREX [Concomitant]
     Active Substance: SUMATRIPTAN SUCCINATE
  3. OSPHENA [Concomitant]
     Active Substance: OSPEMIFENE
  4. FLONASE ALGY [Concomitant]
  5. PEGASYS [Suspect]
     Active Substance: PEGINTERFERON ALFA-2A
     Indication: CUTANEOUS T-CELL LYMPHOMA
     Dosage: ?          OTHER STRENGTH:180/0.5 UG/ML;??DOSE OR AMOUNT: 1 SYR?
     Route: 058
     Dates: start: 20190221
  6. MERCAPTOPUR [Concomitant]
  7. PROPRANOLOL [Concomitant]
     Active Substance: PROPRANOLOL HYDROCHLORIDE

REACTIONS (2)
  - Bone marrow disorder [None]
  - Surgery [None]

NARRATIVE: CASE EVENT DATE: 20210428
